FAERS Safety Report 7403125-1 (Version None)
Quarter: 2011Q2

REPORT INFORMATION
  Report Type: 
  Country: None (occurrence: None)
  Receive Date: 20110408
  Receipt Date: 20110405
  Transmission Date: 20111010
  Serious: Yes (Hospitalization, Other)
  Sender: FDA-Public Use
  Company Number: US-PFIZER INC-2005116465

PATIENT
  Sex: Male

DRUGS (3)
  1. NEURONTIN [Suspect]
     Indication: NEURALGIA
     Dosage: 300 MG, 3X/DAY
     Dates: start: 20040301, end: 20040501
  2. NEURONTIN [Suspect]
     Indication: PAIN
     Dosage: 1200 MG DAILY
     Dates: start: 20011203, end: 20020101
  3. NEURONTIN [Suspect]
     Dosage: UNK
     Dates: start: 20040701

REACTIONS (11)
  - DISORIENTATION [None]
  - HYPOTRICHOSIS [None]
  - SUICIDE ATTEMPT [None]
  - SUICIDAL IDEATION [None]
  - ANGER [None]
  - ANXIETY [None]
  - AMNESIA [None]
  - DEPRESSION [None]
  - FATIGUE [None]
  - PAIN [None]
  - INSOMNIA [None]
